FAERS Safety Report 4524406-5 (Version None)
Quarter: 2004Q4

REPORT INFORMATION
  Report Type: 
  Country: None (occurrence: None)
  Receive Date: 20041123
  Receipt Date: 20040401
  Transmission Date: 20050328
  Serious: Yes (Life-Threatening)
  Sender: FDA-Public Use
  Company Number: US-JNJFOC-20031003413

PATIENT
  Age: 46 Year
  Sex: Female
  Weight: 69.99 kg

DRUGS (7)
  1. PROPULSID [Suspect]
     Indication: GASTROOESOPHAGEAL REFLUX DISEASE
     Dosage: 10 MG, 2 IN 1 DAY
     Dates: start: 19930101, end: 19950101
  2. PROPULSID [Suspect]
     Indication: REFLUX OESOPHAGITIS
     Dosage: 10 MG, 2 IN 1 DAY
     Dates: start: 19930101, end: 19950101
  3. PROPULSID [Suspect]
     Indication: GASTROOESOPHAGEAL REFLUX DISEASE
     Dosage: 10 MG, 2 IN 1 DAY
     Dates: start: 19951026
  4. PROPULSID [Suspect]
     Indication: REFLUX OESOPHAGITIS
     Dosage: 10 MG, 2 IN 1 DAY
     Dates: start: 19951026
  5. DALMANE [Concomitant]
  6. PRILOSEC [Concomitant]
  7. XANAX [Concomitant]

REACTIONS (10)
  - CARDIAC DISORDER [None]
  - CHEST PAIN [None]
  - DYSPNOEA [None]
  - ELECTROCARDIOGRAM QT PROLONGED [None]
  - HYPERTENSION [None]
  - PALPITATIONS [None]
  - TACHYCARDIA [None]
  - TORSADE DE POINTES [None]
  - VENTRICULAR FIBRILLATION [None]
  - VENTRICULAR TACHYCARDIA [None]
